FAERS Safety Report 19443146 (Version 1)
Quarter: 2021Q2

REPORT INFORMATION
  Report Type: Report from Study
  Country: PA (occurrence: PA)
  Receive Date: 20210621
  Receipt Date: 20210621
  Transmission Date: 20210717
  Serious: Yes (Other)
  Sender: FDA-Public Use
  Company Number: NVSC2021PA136535

PATIENT
  Sex: Female

DRUGS (1)
  1. ANASTROZOLE. [Suspect]
     Active Substance: ANASTROZOLE
     Indication: PRODUCT USED FOR UNKNOWN INDICATION
     Dosage: UNK
     Route: 065
     Dates: start: 2012, end: 2019

REACTIONS (6)
  - Discomfort [Unknown]
  - Metastases to heart [Unknown]
  - Metastases to spine [Unknown]
  - Pain [Recovering/Resolving]
  - Metastases to lung [Unknown]
  - Metastases to stomach [Unknown]
